FAERS Safety Report 7083512-4 (Version None)
Quarter: 2010Q4

REPORT INFORMATION
  Report Type: 
  Country: None (occurrence: None)
  Receive Date: 20101103
  Receipt Date: 20101103
  Transmission Date: 20110411
  Serious: Yes (Other)
  Sender: FDA-Public Use
  Company Number: None

PATIENT
  Age: 18 Month
  Sex: Female
  Weight: 11.3399 kg

DRUGS (1)
  1. AMOX/CLAV SUSPENSION 600 MG/ 42.9 MG/ 5 ML TEVA [Suspect]
     Indication: INFECTION
     Dosage: 3/4 TEAS 2 BID PO
     Route: 048
     Dates: start: 20101030, end: 20101031

REACTIONS (6)
  - CANDIDA NAPPY RASH [None]
  - DIARRHOEA [None]
  - DIZZINESS [None]
  - FALL [None]
  - MEDICATION ERROR [None]
  - WRONG TECHNIQUE IN DRUG USAGE PROCESS [None]
